FAERS Safety Report 15481840 (Version 1)
Quarter: 2018Q4

REPORT INFORMATION
  Report Type: Spontaneous
  Country: US (occurrence: US)
  Receive Date: 20181003
  Receipt Date: 20181003
  Transmission Date: 20190205
  Serious: Yes (Hospitalization)
  Sender: FDA-Public Use
  Company Number: None

PATIENT
  Sex: Female
  Weight: 65.8 kg

DRUGS (2)
  1. DASATINIB. [Suspect]
     Active Substance: DASATINIB
     Indication: NON-SMALL CELL LUNG CANCER
     Route: 048
     Dates: start: 20180503
  2. OSIMERTINIB. [Suspect]
     Active Substance: OSIMERTINIB
     Route: 048
     Dates: start: 20180503

REACTIONS (1)
  - Aphasia [None]

NARRATIVE: CASE EVENT DATE: 20180930
